FAERS Safety Report 12011932 (Version 1)
Quarter: 2016Q1

REPORT INFORMATION
  Report Type: Report from Study
  Country: CO (occurrence: CO)
  Receive Date: 20160205
  Receipt Date: 20160205
  Transmission Date: 20160526
  Serious: Yes (Hospitalization)
  Sender: FDA-Public Use
  Company Number: CO-ASTRAZENECA-2016SE10855

PATIENT
  Age: 17672 Day
  Sex: Male

DRUGS (2)
  1. BRILINTA [Suspect]
     Active Substance: TICAGRELOR
     Indication: INFARCTION
     Route: 048
     Dates: start: 20150715
  2. BRILINTA [Suspect]
     Active Substance: TICAGRELOR
     Indication: INFARCTION
     Dosage: 2 DF DAILY
     Route: 048

REACTIONS (2)
  - Myocardial infarction [Recovered/Resolved]
  - Intentional product misuse [Recovered/Resolved]

NARRATIVE: CASE EVENT DATE: 20160121
